FAERS Safety Report 5569734-X (Version None)
Quarter: 2007Q4

REPORT INFORMATION
  Report Type: 
  Country: None (occurrence: None)
  Receive Date: 20071218
  Receipt Date: 20071206
  Transmission Date: 20080405
  Serious: No
  Sender: FDA-Public Use
  Company Number: 2007-168730-NL

PATIENT
  Age: 24 Year
  Sex: Female

DRUGS (1)
  1. ETONOGESTREL [Suspect]
     Indication: CONTRACEPTION
     Dosage: DF SUBCUTANEOUS
     Route: 058
     Dates: start: 20070620, end: 20071107

REACTIONS (5)
  - DISCOMFORT [None]
  - EYE PRURITUS [None]
  - EYELID OEDEMA [None]
  - IMPLANT SITE PRURITUS [None]
  - RASH PRURITIC [None]
